FAERS Safety Report 15165594 (Version 1)
Quarter: 2018Q3

REPORT INFORMATION
  Report Type: Spontaneous
  Country: US (occurrence: US)
  Receive Date: 20180621
  Receipt Date: 20180621
  Transmission Date: 20181010
  Serious: No
  Sender: FDA-Public Use
  Company Number: None

PATIENT
  Age: 76 Year
  Sex: Male

DRUGS (1)
  1. SUTENT [Suspect]
     Active Substance: SUNITINIB MALATE
     Indication: GENERAL SYMPTOM
     Dosage: 37.5MG DAILY 4 WEEKS ON, 2 WEEKS OFF; ORAL?
     Route: 048
     Dates: start: 20180502

REACTIONS (1)
  - Rash [None]

NARRATIVE: CASE EVENT DATE: 20180601
